FAERS Safety Report 23238404 (Version 1)
Quarter: 2023Q4

REPORT INFORMATION
  Report Type: Spontaneous
  Country: IN (occurrence: IN)
  Receive Date: 20231129
  Receipt Date: 20231129
  Transmission Date: 20240110
  Serious: Yes (Life-Threatening, Other)
  Sender: FDA-Public Use
  Company Number: None

PATIENT
  Age: 24 Year
  Sex: Female

DRUGS (1)
  1. LEVOFLOXACIN [Suspect]
     Active Substance: LEVOFLOXACIN
     Indication: Meningitis tuberculous
     Dosage: UNK, UNK
     Route: 065

REACTIONS (3)
  - Myasthenia gravis crisis [Recovering/Resolving]
  - Respiratory depression [Recovering/Resolving]
  - Myasthenia gravis [Recovering/Resolving]
